FAERS Safety Report 10045816 (Version 1)
Quarter: 2014Q1

REPORT INFORMATION
  Report Type: Spontaneous
  Country: GB (occurrence: GB)
  Receive Date: 20140328
  Receipt Date: 20140328
  Transmission Date: 20141002
  Serious: Yes (Other)
  Sender: FDA-Public Use
  Company Number: PHHY2014GB034417

PATIENT
  Age: 68 Year
  Sex: Female
  Weight: 88.9 kg

DRUGS (5)
  1. MIRTAZAPINE [Suspect]
     Indication: INSOMNIA
     Dosage: 0.5 DF, (HALF OF ONE TABLET (OF THE LOWEST DOSE STRENGTH OF MIRTAZAPINE))
     Route: 048
     Dates: start: 20140130, end: 20140131
  2. ASPIRIN [Concomitant]
     Dosage: UNK
  3. IBUPROFEN [Concomitant]
     Dosage: UNK
     Dates: end: 20091118
  4. NATRASLEEP [Concomitant]
     Indication: INSOMNIA
     Dosage: UNK
     Dates: start: 20131212, end: 20140110
  5. PARACETAMOL [Concomitant]
     Dosage: UNK
     Dates: start: 20091118

REACTIONS (3)
  - Psychomotor hyperactivity [Recovered/Resolved with Sequelae]
  - Psychotic disorder [Recovered/Resolved with Sequelae]
  - Self-injurious ideation [Recovered/Resolved with Sequelae]
